FAERS Safety Report 4431244-0 (Version None)
Quarter: 2004Q3

REPORT INFORMATION
  Report Type: 
  Country: None (occurrence: None)
  Receive Date: 20040824
  Receipt Date: 20040813
  Transmission Date: 20050211
  Serious: Yes (Hospitalization)
  Sender: FDA-Public Use
  Company Number: US-JNJFOC-20040804923

PATIENT
  Sex: Female

DRUGS (7)
  1. REMINYL [Suspect]
     Route: 049
     Dates: start: 20030101
  2. PROTONIX [Concomitant]
     Route: 049
  3. ALTACE [Concomitant]
     Route: 049
  4. PLAVIK [Concomitant]
     Route: 049
  5. HYDROCHLOROTHIAZIDE [Concomitant]
     Route: 049
  6. ASPIRIN [Concomitant]
     Route: 049
  7. TOPROL-XL [Concomitant]
     Route: 049

REACTIONS (4)
  - APHASIA [None]
  - GASTRITIS [None]
  - MEMORY IMPAIRMENT [None]
  - STARING [None]
